FAERS Safety Report 6845815-5 (Version None)
Quarter: 2010Q3

REPORT INFORMATION
  Report Type: 
  Country: None (occurrence: None)
  Receive Date: 20100713
  Receipt Date: 20100628
  Transmission Date: 20110219
  Serious: Yes (Other)
  Sender: FDA-Public Use
  Company Number: MC201000202

PATIENT

DRUGS (1)
  1. ANGIOMAX [Suspect]
     Indication: PERCUTANEOUS CORONARY INTERVENTION
     Dosage: 0.75 MG/KG, BOLUS, INTRAVENOUS
     Route: 040

REACTIONS (7)
  - CARDIAC TAMPONADE [None]
  - CARDIOGENIC SHOCK [None]
  - CORONARY ARTERY BYPASS [None]
  - HAEMORRHAGE [None]
  - MYOCARDIAL INFARCTION [None]
  - RENAL FAILURE [None]
  - VASCULAR PSEUDOANEURYSM [None]
